FAERS Safety Report 9374012 (Version 2)
Quarter: 2013Q3

REPORT INFORMATION
  Report Type: Spontaneous
  Country: CN (occurrence: CN)
  Receive Date: 20130628
  Receipt Date: 20130708
  Transmission Date: 20140515
  Serious: Yes (Other)
  Sender: FDA-Public Use
  Company Number: CN-ACCORD-018270

PATIENT
  Age: 16 Year
  Sex: 0

DRUGS (3)
  1. TACROLIMUS [Suspect]
     Indication: IMMUNOSUPPRESSION
     Dates: start: 201210
  2. BERBERINE [Interacting]
     Indication: DIARRHOEA
  3. PREDNISONE [Concomitant]
     Indication: IMMUNOSUPPRESSION

REACTIONS (2)
  - Drug interaction [Unknown]
  - Diarrhoea [Unknown]
